FAERS Safety Report 7743790-2 (Version None)
Quarter: 2011Q3

REPORT INFORMATION
  Report Type: 
  Country: None (occurrence: None)
  Receive Date: 20110912
  Receipt Date: 20110831
  Transmission Date: 20111222
  Serious: Yes (Hospitalization, Other)
  Sender: FDA-Public Use
  Company Number: US-GLAXOSMITHKLINE-A0863106A

PATIENT
  Age: 70 Year
  Sex: Male
  Weight: 74.8 kg

DRUGS (15)
  1. DILTIAZEM HCL [Concomitant]
     Indication: BLOOD PRESSURE
     Dosage: 360MG PER DAY
     Route: 048
     Dates: start: 20050101
  2. POTASSIUM CHLORIDE [Concomitant]
     Indication: ELECTROLYTE SUBSTITUTION THERAPY
     Dosage: 20MEQ TWICE PER DAY
     Route: 048
     Dates: start: 20050101
  3. AMBIEN [Concomitant]
     Indication: PRODUCT USED FOR UNKNOWN INDICATION
     Route: 065
  4. NAMENDA [Concomitant]
  5. BUMETANIDE [Concomitant]
  6. VENTOLIN HFA [Concomitant]
  7. ZETIA [Concomitant]
     Indication: CARDIAC DISORDER
     Dosage: 10MG PER DAY
     Route: 048
     Dates: start: 20060101
  8. ALPRAZOLAM [Concomitant]
     Indication: ANXIETY
     Dosage: .5MG AT NIGHT
     Route: 048
     Dates: start: 19980101
  9. METOPROLOL (SLOW RELEASE) [Concomitant]
     Indication: BLOOD PRESSURE
     Dosage: 100MG PER DAY
     Route: 048
     Dates: start: 20050101
  10. UROXATRAL [Concomitant]
     Indication: MICTURITION DISORDER
     Dosage: 10MG AT NIGHT
     Route: 048
     Dates: start: 20091101
  11. ARICEPT [Concomitant]
     Indication: MEMORY IMPAIRMENT
     Dosage: 5MG PER DAY
     Route: 048
     Dates: start: 20100101, end: 20100901
  12. AMLODIPINE [Concomitant]
  13. ADVAIR DISKUS 100/50 [Suspect]
     Indication: EMPHYSEMA
     Dosage: 1PUFF TWICE PER DAY
     Route: 055
     Dates: start: 20100101, end: 20110701
  14. JALYN [Concomitant]
  15. OXYGEN [Concomitant]

REACTIONS (20)
  - PNEUMONIA [None]
  - HEADACHE [None]
  - ABDOMINAL DISCOMFORT [None]
  - MALAISE [None]
  - OEDEMA PERIPHERAL [None]
  - DIZZINESS [None]
  - DYSURIA [None]
  - EYE IRRITATION [None]
  - DIARRHOEA [None]
  - HEAD DISCOMFORT [None]
  - SOMNOLENCE [None]
  - VITAMIN D DECREASED [None]
  - URINE FLOW DECREASED [None]
  - BLADDER DISORDER [None]
  - GAIT DISTURBANCE [None]
  - STRESS [None]
  - DEMENTIA [None]
  - HYPOTONIA [None]
  - ERYTHEMA [None]
  - NAUSEA [None]
